FAERS Safety Report 9823631 (Version 2)
Quarter: 2014Q1

REPORT INFORMATION
  Report Type: Spontaneous
  Country: US (occurrence: US)
  Receive Date: 20140116
  Receipt Date: 20140116
  Transmission Date: 20141002
  Serious: No
  Sender: FDA-Public Use
  Company Number: US-GILEAD-2011-0038639

PATIENT
  Age: 69 Year
  Sex: Female

DRUGS (5)
  1. LETAIRIS [Suspect]
     Indication: PULMONARY HYPERTENSION
     Route: 048
     Dates: start: 20110325, end: 20110426
  2. REVATIO [Concomitant]
  3. COZAAR [Concomitant]
  4. DEMADEX [Concomitant]
  5. SIMVASTATIN [Concomitant]

REACTIONS (6)
  - Depression [Unknown]
  - Diarrhoea [Unknown]
  - Headache [Not Recovered/Not Resolved]
  - Oedema [Not Recovered/Not Resolved]
  - Rash [Unknown]
  - Nasal congestion [Unknown]
